FAERS Safety Report 9643530 (Version 4)
Quarter: 2013Q4

REPORT INFORMATION
  Report Type: Spontaneous
  Country: US (occurrence: US)
  Receive Date: 20131024
  Receipt Date: 20131213
  Transmission Date: 20140711
  Serious: Yes (Hospitalization)
  Sender: FDA-Public Use
  Company Number: US-PFIZER INC-2013302850

PATIENT
  Age: 72 Year
  Sex: Male
  Weight: 84.81 kg

DRUGS (1)
  1. CADUET [Suspect]
     Dosage: [AMLODIPINE BESILATE 5MG]/ [ATORVASTATIN CALCIUM 40 MG], UNK

REACTIONS (1)
  - Lung neoplasm malignant [Unknown]
